FAERS Safety Report 9885982 (Version 1)
Quarter: 2014Q1

REPORT INFORMATION
  Report Type: Spontaneous
  Country: US (occurrence: None)
  Receive Date: 20140207
  Receipt Date: 20140207
  Transmission Date: 20141002
  Serious: No
  Sender: FDA-Public Use
  Company Number: None

PATIENT
  Age: 55 Year
  Sex: Female

DRUGS (1)
  1. ACTHAR GEL [Suspect]
     Indication: DERMATOMYOSITIS
     Dosage: INJECT 1ML UNDER THE SKIN EVERY 2 WEEKS FOR 6 MONTHS, EXPIRES IN 28 DAYS ONCE OPENED;
     Route: 058
     Dates: start: 20131023, end: 20140113

REACTIONS (2)
  - Palpitations [None]
  - Dyspnoea [None]
